FAERS Safety Report 18502811 (Version 1)
Quarter: 2020Q4

REPORT INFORMATION
  Report Type: Spontaneous
  Country: US (occurrence: US)
  Receive Date: 20201113
  Receipt Date: 20201113
  Transmission Date: 20210114
  Serious: Yes (Other)
  Sender: FDA-Public Use
  Company Number: US-PFIZER INC-2020446106

PATIENT

DRUGS (1)
  1. METAXALONE. [Suspect]
     Active Substance: METAXALONE
     Dosage: UNK

REACTIONS (1)
  - Dementia [Unknown]
